FAERS Safety Report 5413615-9 (Version None)
Quarter: 2007Q3

REPORT INFORMATION
  Report Type: 
  Country: None (occurrence: None)
  Receive Date: 20070814
  Receipt Date: 20061208
  Transmission Date: 20080115
  Serious: No
  Sender: FDA-Public Use
  Company Number: US-BRISTOL-MYERS SQUIBB COMPANY-13606504

PATIENT
  Age: 63 Year
  Sex: Female
  Weight: 97 kg

DRUGS (3)
  1. GLUCOVANCE [Suspect]
     Indication: DIABETES MELLITUS
     Route: 048
     Dates: start: 20061010
  2. BYETTA [Suspect]
     Indication: TYPE 2 DIABETES MELLITUS
     Dosage: INCREASED TO 10MCG;BID,SC FROM 04-NOV-2006 ONGOING
     Route: 058
     Dates: start: 20061005, end: 20061103
  3. AVANDAMET [Suspect]
     Indication: DIABETES MELLITUS
     Route: 048
     Dates: start: 20061005, end: 20061009

REACTIONS (6)
  - CHILLS [None]
  - DIARRHOEA [None]
  - ERUCTATION [None]
  - NAUSEA [None]
  - VOMITING [None]
  - WEIGHT DECREASED [None]
